FAERS Safety Report 7481987-X (Version None)
Quarter: 2011Q2

REPORT INFORMATION
  Report Type: 
  Country: None (occurrence: None)
  Receive Date: 20110516
  Receipt Date: 20110506
  Transmission Date: 20111010
  Serious: Yes (Other)
  Sender: FDA-Public Use
  Company Number: CHPA2011US06476

PATIENT
  Age: 82 Year
  Sex: Female

DRUGS (1)
  1. BENEFIBER W/ WHEAT DEXTRIN [Suspect]
     Indication: MEDICAL DIET
     Dosage: 1 TSP, QD
     Route: 048

REACTIONS (2)
  - GALLBLADDER OPERATION [None]
  - ABNORMAL FAECES [None]
